FAERS Safety Report 21397821 (Version 2)
Quarter: 2024Q1

REPORT INFORMATION
  Report Type: Spontaneous
  Country: US (occurrence: US)
  Receive Date: 20220930
  Receipt Date: 20240212
  Transmission Date: 20240410
  Serious: No
  Sender: FDA-Public Use
  Company Number: US-ELI_LILLY_AND_COMPANY-US202209009288

PATIENT
  Age: 48 Year
  Sex: Female

DRUGS (9)
  1. MOUNJARO [Suspect]
     Active Substance: TIRZEPATIDE
     Indication: Latent autoimmune diabetes in adults
     Dosage: 2.5 MG, UNKNOWN
     Route: 058
     Dates: start: 202208
  2. MOUNJARO [Suspect]
     Active Substance: TIRZEPATIDE
     Indication: Latent autoimmune diabetes in adults
     Dosage: 2.5 MG, UNKNOWN
     Route: 058
     Dates: start: 202208
  3. MOUNJARO [Suspect]
     Active Substance: TIRZEPATIDE
     Indication: Latent autoimmune diabetes in adults
     Dosage: 2.5 MG, UNKNOWN
     Route: 058
     Dates: start: 202208
  4. MOUNJARO [Suspect]
     Active Substance: TIRZEPATIDE
     Indication: Latent autoimmune diabetes in adults
     Dosage: 2.5 MG, UNKNOWN
     Route: 058
     Dates: start: 202208
  5. MOUNJARO [Suspect]
     Active Substance: TIRZEPATIDE
     Indication: Latent autoimmune diabetes in adults
     Dosage: 2.5 MG, UNKNOWN
     Route: 058
     Dates: start: 202208
  6. MOUNJARO [Suspect]
     Active Substance: TIRZEPATIDE
     Indication: Latent autoimmune diabetes in adults
     Dosage: 5 MG, UNKNOWN
     Route: 058
  7. MOUNJARO [Suspect]
     Active Substance: TIRZEPATIDE
     Indication: Latent autoimmune diabetes in adults
     Dosage: 5 MG, UNKNOWN
     Route: 058
  8. MOUNJARO [Suspect]
     Active Substance: TIRZEPATIDE
     Indication: Latent autoimmune diabetes in adults
     Dosage: 5 MG, UNKNOWN
     Route: 058
  9. MOUNJARO [Suspect]
     Active Substance: TIRZEPATIDE
     Indication: Latent autoimmune diabetes in adults
     Dosage: 5 MG, UNKNOWN
     Route: 058

REACTIONS (6)
  - Hunger [Unknown]
  - Fatigue [Recovered/Resolved]
  - Vomiting [Recovered/Resolved]
  - Nausea [Recovered/Resolved]
  - Illness [Recovered/Resolved]
  - Off label use [Unknown]

NARRATIVE: CASE EVENT DATE: 20220801
